FAERS Safety Report 4932134-7 (Version None)
Quarter: 2006Q1

REPORT INFORMATION
  Report Type: 
  Country: None (occurrence: None)
  Receive Date: 20060303
  Receipt Date: 20060222
  Transmission Date: 20060701
  Serious: Yes (Hospitalization)
  Sender: FDA-Public Use
  Company Number: VE-ROCHE-437797

PATIENT
  Age: 18 Year
  Sex: Female

DRUGS (2)
  1. ROACCUTANE [Suspect]
     Indication: ACNE
     Dosage: STRENGTH STATED AS 20 MG, DOSING REGIMEN STATED AS DAILY.
     Route: 048
     Dates: start: 20050115, end: 20050115
  2. ROACCUTANE [Suspect]
     Dosage: STRENGTH STATED AS 10 MG. DOSING REGIMEN STATED AS DAILY.
     Route: 048
     Dates: start: 20050215, end: 20050315

REACTIONS (1)
  - DEEP VEIN THROMBOSIS [None]
